FAERS Safety Report 24983719 (Version 1)
Quarter: 2025Q1

REPORT INFORMATION
  Report Type: Spontaneous
  Country: US (occurrence: US)
  Receive Date: 20250219
  Receipt Date: 20250219
  Transmission Date: 20250409
  Serious: No
  Sender: ABBVIE
  Company Number: US-ABBVIE-6135052

PATIENT
  Sex: Male

DRUGS (1)
  1. UPADACITINIB [Suspect]
     Active Substance: UPADACITINIB
     Indication: Psoriatic arthropathy
     Route: 048

REACTIONS (15)
  - Pericardial effusion [Unknown]
  - Cough [Unknown]
  - White blood cell count increased [Recovering/Resolving]
  - Platelet count increased [Not Recovered/Not Resolved]
  - Anaemia [Unknown]
  - Abdominal pain [Not Recovered/Not Resolved]
  - Constipation [Not Recovered/Not Resolved]
  - Serum ferritin increased [Unknown]
  - Cardiomegaly [Unknown]
  - Atelectasis [Unknown]
  - Pain [Unknown]
  - Chest pain [Unknown]
  - Malaise [Unknown]
  - Decreased appetite [Unknown]
  - Night sweats [Unknown]

NARRATIVE: CASE EVENT DATE: 20241201
